FAERS Safety Report 25046187 (Version 1)
Quarter: 2025Q1

REPORT INFORMATION
  Report Type: Spontaneous
  Country: IT (occurrence: IT)
  Receive Date: 20250306
  Receipt Date: 20250306
  Transmission Date: 20250409
  Serious: Yes (Other)
  Sender: MYLAN
  Company Number: IT-MYLANLABS-2025M1018982

PATIENT
  Age: 67 Year
  Sex: Female

DRUGS (2)
  1. DOXORUBICIN [Suspect]
     Active Substance: DOXORUBICIN
     Indication: Solitary fibrous tumour
  2. DACARBAZINE [Suspect]
     Active Substance: DACARBAZINE
     Indication: Solitary fibrous tumour

REACTIONS (2)
  - Disease progression [Unknown]
  - Drug ineffective [Unknown]
